FAERS Safety Report 11384536 (Version 1)
Quarter: 2015Q3

REPORT INFORMATION
  Report Type: Spontaneous
  Country: US (occurrence: US)
  Receive Date: 20150811
  Receipt Date: 20150811
  Transmission Date: 20151125
  Serious: Yes (Other)
  Sender: FDA-Public Use
  Company Number: US-ELI_LILLY_AND_COMPANY-US201104001940

PATIENT
  Sex: Male
  Weight: 122.45 kg

DRUGS (4)
  1. CIALIS [Suspect]
     Active Substance: TADALAFIL
     Dosage: 5 MG, QD
  2. TESTIM [Concomitant]
     Active Substance: TESTOSTERONE
  3. CIALIS [Suspect]
     Active Substance: TADALAFIL
     Dosage: 10 MG, UNK
  4. CIALIS [Suspect]
     Active Substance: TADALAFIL
     Indication: ERECTILE DYSFUNCTION
     Dosage: 20 MG, UNK

REACTIONS (6)
  - Feeling abnormal [Unknown]
  - Bed rest [Unknown]
  - Headache [Unknown]
  - Deafness unilateral [Recovered/Resolved]
  - Flushing [Unknown]
  - Wrong technique in product usage process [Unknown]
